FAERS Safety Report 8164443-5 (Version None)
Quarter: 2012Q1

REPORT INFORMATION
  Report Type: 
  Country: None (occurrence: None)
  Receive Date: 20120224
  Receipt Date: 20120222
  Transmission Date: 20120608
  Serious: Yes (Hospitalization)
  Sender: FDA-Public Use
  Company Number: JP-ABBOTT-12P-087-0903828-00

PATIENT
  Age: 52 Year
  Sex: Male

DRUGS (2)
  1. MESALAMINE [Suspect]
  2. MESALAMINE [Suspect]
     Indication: COLITIS ULCERATIVE
     Dosage: 1500-4000 MG/DAY

REACTIONS (2)
  - TRAUMATIC LUNG INJURY [None]
  - ORGANISING PNEUMONIA [None]
